FAERS Safety Report 25096420 (Version 3)
Quarter: 2025Q2

REPORT INFORMATION
  Report Type: Spontaneous
  Country: US (occurrence: US)
  Receive Date: 20250319
  Receipt Date: 20250425
  Transmission Date: 20250716
  Serious: No
  Sender: PFIZER
  Company Number: US-PFIZER INC-PV202500033024

PATIENT
  Age: 53 Year
  Sex: Female
  Weight: 70.748 kg

DRUGS (1)
  1. NURTEC ODT [Suspect]
     Active Substance: RIMEGEPANT SULFATE
     Indication: Migraine
     Route: 048
     Dates: start: 20250109, end: 20250316

REACTIONS (2)
  - Anxiety [Recovering/Resolving]
  - Depressive symptom [Recovered/Resolved]

NARRATIVE: CASE EVENT DATE: 20250224
